FAERS Safety Report 11251081 (Version 2)
Quarter: 2015Q3

REPORT INFORMATION
  Report Type: Spontaneous
  Country: US (occurrence: US)
  Receive Date: 20150708
  Receipt Date: 20150803
  Transmission Date: 20151125
  Serious: No
  Sender: FDA-Public Use
  Company Number: US-ELI_LILLY_AND_COMPANY-US201108004403

PATIENT
  Age: 29 Year
  Sex: Male

DRUGS (1)
  1. ZYPREXA RELPREVV [Suspect]
     Active Substance: OLANZAPINE PAMOATE
     Dosage: 210 MG, UNKNOWN
     Route: 030

REACTIONS (2)
  - Distractibility [Unknown]
  - Hallucination [Unknown]

NARRATIVE: CASE EVENT DATE: 20110809
